FAERS Safety Report 19757098 (Version 1)
Quarter: 2021Q3

REPORT INFORMATION
  Report Type: Spontaneous
  Country: US (occurrence: US)
  Receive Date: 20210827
  Receipt Date: 20210827
  Transmission Date: 20211014
  Serious: No
  Sender: FDA-Public Use
  Company Number: US-SA-2021SA282798

PATIENT
  Sex: Female

DRUGS (1)
  1. XYZAL ALLERGY 24HR [Suspect]
     Active Substance: LEVOCETIRIZINE DIHYDROCHLORIDE
     Dosage: UNK

REACTIONS (5)
  - Feeling abnormal [Unknown]
  - Dyspnoea [Unknown]
  - Abdominal discomfort [Unknown]
  - Drug ineffective [Unknown]
  - Frequent bowel movements [Unknown]
